FAERS Safety Report 14984828 (Version 1)
Quarter: 2018Q3

REPORT INFORMATION
  Report Type: Spontaneous
  Country: US (occurrence: US)
  Receive Date: 20180607
  Receipt Date: 20180607
  Transmission Date: 20181010
  Serious: No
  Sender: FDA-Public Use
  Company Number: US-FOUNDATIONCONSUMERHC-2018-US-005831

PATIENT
  Age: 26 Year
  Sex: Female
  Weight: 73.94 kg

DRUGS (5)
  1. VITAMIN E?UNSPECIFIED PRODUCT [Concomitant]
  2. POTASSIUM SUPPLEMENT?UNSPECIFIED [Concomitant]
  3. UNSPECIFIED ^BLOOD THINNER^ [Suspect]
     Active Substance: UNSPECIFIED INGREDIENT
     Dates: start: 20180325, end: 20180325
  4. VITAMIN C?UNSPECIFIED PRODUCT [Concomitant]
  5. PLAN B ONE?STEP [Suspect]
     Active Substance: LEVONORGESTREL
     Indication: POST COITAL CONTRACEPTION
     Dosage: 1.5MG
     Route: 048
     Dates: start: 20180322, end: 20180322

REACTIONS (3)
  - Vaginal haemorrhage [Not Recovered/Not Resolved]
  - Vaginal haemorrhage [Recovered/Resolved]
  - Dysmenorrhoea [Recovered/Resolved]

NARRATIVE: CASE EVENT DATE: 20180325
